FAERS Safety Report 6290571-5 (Version None)
Quarter: 2009Q3

REPORT INFORMATION
  Report Type: 
  Country: None (occurrence: None)
  Receive Date: 20090728
  Receipt Date: 20090728
  Transmission Date: 20100115
  Serious: No
  Sender: FDA-Public Use
  Company Number: None

PATIENT
  Age: 52 Year
  Sex: Male
  Weight: 83.9154 kg

DRUGS (1)
  1. LIPITOR [Suspect]
     Indication: BLOOD CHOLESTEROL INCREASED
     Dosage: 1 TABLET DAILY PO
     Route: 048
     Dates: start: 20050921, end: 20081028

REACTIONS (6)
  - ARTHRALGIA [None]
  - DRUG INEFFECTIVE [None]
  - FATIGUE [None]
  - MYALGIA [None]
  - PARAESTHESIA [None]
  - QUALITY OF LIFE DECREASED [None]
